FAERS Safety Report 25932758 (Version 1)
Quarter: 2025Q4

REPORT INFORMATION
  Report Type: Spontaneous
  Country: GB (occurrence: GB)
  Receive Date: 20251017
  Receipt Date: 20251017
  Transmission Date: 20260118
  Serious: Yes (Other)
  Sender: ACCORD
  Company Number: None

PATIENT
  Age: 84 Year
  Sex: Female

DRUGS (1)
  1. APIXABAN [Suspect]
     Active Substance: APIXABAN
     Indication: Product used for unknown indication
     Dosage: 2.5 MG TWICE A DAY

REACTIONS (3)
  - Skin lesion [Not Recovered/Not Resolved]
  - Solar lentigo [Not Recovered/Not Resolved]
  - Pruritus [Not Recovered/Not Resolved]
